FAERS Safety Report 9832159 (Version 1)
Quarter: 2014Q1

REPORT INFORMATION
  Report Type: Report from Study
  Country: CA (occurrence: CA)
  Receive Date: 20140121
  Receipt Date: 20140121
  Transmission Date: 20141002
  Serious: Yes (Hospitalization)
  Sender: FDA-Public Use
  Company Number: CA-JNJFOC-20140107553

PATIENT
  Age: 38 Year
  Sex: Male
  Weight: 80 kg

DRUGS (1)
  1. REMICADE [Suspect]
     Indication: CROHN^S DISEASE
     Route: 042
     Dates: start: 20080718

REACTIONS (5)
  - Hernia repair [Unknown]
  - Nausea [Unknown]
  - Vomiting [Unknown]
  - Feeling of body temperature change [Unknown]
  - Abdominal pain [Unknown]
